FAERS Safety Report 25871634 (Version 1)
Quarter: 2025Q4

REPORT INFORMATION
  Report Type: Spontaneous
  Country: US (occurrence: US)
  Receive Date: 20251001
  Receipt Date: 20251001
  Transmission Date: 20260118
  Serious: Yes (Other)
  Sender: FARMAKEIO OUTSOURCING LLC
  Company Number: US-FarmaKeio Outsourcing, LLC-2185739

PATIENT
  Age: 56 Year
  Sex: Male
  Weight: 127.73 kg

DRUGS (1)
  1. TESTOSTERONE\TRIAMCINOLONE ACETONIDE [Suspect]
     Active Substance: TESTOSTERONE\TRIAMCINOLONE ACETONIDE
     Indication: Hormone replacement therapy
     Dates: start: 20250804

REACTIONS (1)
  - Hypersensitivity [Recovered/Resolved]
